FAERS Safety Report 14454927 (Version 1)
Quarter: 2018Q1

REPORT INFORMATION
  Report Type: Spontaneous
  Country: US (occurrence: US)
  Receive Date: 20180129
  Receipt Date: 20180129
  Transmission Date: 20180509
  Serious: Yes (Other)
  Sender: FDA-Public Use
  Company Number: US-DEPOMED, INC.-US-2018DEP000131

PATIENT

DRUGS (2)
  1. ZIPSOR [Suspect]
     Active Substance: DICLOFENAC POTASSIUM
     Indication: SCIATICA
     Dosage: 1 DF, QID
     Route: 048
     Dates: start: 20180105, end: 20180108
  2. GABAPENTIN. [Concomitant]
     Active Substance: GABAPENTIN
     Indication: SCIATICA
     Dosage: 1 DF, TID
     Route: 048

REACTIONS (3)
  - Pain [Not Recovered/Not Resolved]
  - Frustration tolerance decreased [Not Recovered/Not Resolved]
  - Sciatica [Unknown]

NARRATIVE: CASE EVENT DATE: 201801
